FAERS Safety Report 8887098 (Version 1)
Quarter: 2012Q4

REPORT INFORMATION
  Report Type: 
  Country: CA (occurrence: CA)
  Receive Date: 20121105
  Receipt Date: 20121105
  Transmission Date: 20130627
  Serious: Yes (Life-Threatening, Disabling)
  Sender: FDA-Public Use
  Company Number: CA-ASTRAZENECA-2012SE82900

PATIENT
  Age: 62 Year
  Sex: Male
  Weight: 59 kg

DRUGS (7)
  1. NEXIUM [Suspect]
     Route: 048
  2. MAGNESIUM [Concomitant]
  3. NAPROXEN [Concomitant]
  4. VITAMIN B COMPLEX [Concomitant]
  5. VITAMIN B12 [Concomitant]
  6. VITAMIN C [Concomitant]
  7. VITAMIN D [Concomitant]

REACTIONS (23)
  - Chest pain [Not Recovered/Not Resolved]
  - Electric shock [Not Recovered/Not Resolved]
  - Asthenia [Not Recovered/Not Resolved]
  - Back pain [Not Recovered/Not Resolved]
  - Bone pain [Not Recovered/Not Resolved]
  - Cough [Not Recovered/Not Resolved]
  - Deafness bilateral [Not Recovered/Not Resolved]
  - Decreased appetite [Not Recovered/Not Resolved]
  - Disturbance in attention [Not Recovered/Not Resolved]
  - Fatigue [Not Recovered/Not Resolved]
  - Gastrooesophageal reflux disease [Not Recovered/Not Resolved]
  - Medication residue [Not Recovered/Not Resolved]
  - Muscle spasms [Not Recovered/Not Resolved]
  - Rhinorrhoea [Not Recovered/Not Resolved]
  - Tongue disorder [Not Recovered/Not Resolved]
  - Tremor [Not Recovered/Not Resolved]
  - Yellow skin [Not Recovered/Not Resolved]
  - Diarrhoea [Not Recovered/Not Resolved]
  - Vomiting [Not Recovered/Not Resolved]
  - Vertigo [Not Recovered/Not Resolved]
  - Vision blurred [Not Recovered/Not Resolved]
  - Depression [Not Recovered/Not Resolved]
  - Ageusia [Not Recovered/Not Resolved]
